FAERS Safety Report 16153540 (Version 2)
Quarter: 2019Q2

REPORT INFORMATION
  Report Type: Spontaneous
  Country: CA (occurrence: CA)
  Receive Date: 20190403
  Receipt Date: 20190513
  Transmission Date: 20190711
  Serious: Yes (Hospitalization)
  Sender: FDA-Public Use
  Company Number: CA-PFIZER INC-2019139685

PATIENT
  Age: 73 Year
  Sex: Female

DRUGS (1)
  1. METHOTREXATE SODIUM. [Suspect]
     Active Substance: METHOTREXATE SODIUM
     Indication: RHEUMATOID ARTHRITIS
     Dosage: 15 MG, WEEKLY
     Route: 048

REACTIONS (8)
  - Femur fracture [Unknown]
  - Hernia [Unknown]
  - Infection [Recovered/Resolved]
  - Aneurysm [Unknown]
  - Fall [Unknown]
  - Pain in extremity [Unknown]
  - Pain [Unknown]
  - Joint range of motion decreased [Unknown]
